FAERS Safety Report 12975287 (Version 1)
Quarter: 2016Q4

REPORT INFORMATION
  Report Type: Spontaneous
  Country: US (occurrence: US)
  Receive Date: 20161123
  Receipt Date: 20161123
  Transmission Date: 20170207
  Serious: No
  Sender: FDA-Public Use
  Company Number: None

PATIENT
  Age: 47 Year
  Sex: Female

DRUGS (7)
  1. TESSALON [Concomitant]
     Active Substance: BENZONATATE
  2. DUONEB [Concomitant]
     Active Substance: ALBUTEROL SULFATE\IPRATROPIUM BROMIDE
  3. IMATINIB [Suspect]
     Active Substance: IMATINIB
     Indication: CHRONIC MYELOID LEUKAEMIA
     Route: 048
     Dates: start: 20161006, end: 20161104
  4. HYDREA [Concomitant]
     Active Substance: HYDROXYUREA
  5. LANTUS [Concomitant]
     Active Substance: INSULIN GLARGINE
  6. ALLOPURINOL. [Concomitant]
     Active Substance: ALLOPURINOL
  7. NOVOLOG [Concomitant]
     Active Substance: INSULIN ASPART

REACTIONS (4)
  - Headache [None]
  - Palpitations [None]
  - Abdominal discomfort [None]
  - Nausea [None]

NARRATIVE: CASE EVENT DATE: 20161103
